FAERS Safety Report 5582406-0 (Version None)
Quarter: 2007Q4

REPORT INFORMATION
  Report Type: 
  Country: None (occurrence: None)
  Receive Date: 20071130
  Receipt Date: 20071001
  Transmission Date: 20080405
  Serious: Yes (Hospitalization)
  Sender: FDA-Public Use
  Company Number: 8025799

PATIENT
  Age: 21 Year
  Sex: Male
  Weight: 30 kg

DRUGS (11)
  1. KEPPRA [Suspect]
     Indication: CONVULSION
     Dosage: 300 MG 2/D IV
     Route: 042
     Dates: start: 20070712
  2. KEPPRA [Suspect]
     Indication: CONVULSION
     Dosage: 600 MG/D PO
     Route: 048
     Dates: start: 20070803
  3. FLUCONAZOLE [Suspect]
     Dosage: 1.5 MG 4/D IV
     Route: 042
     Dates: start: 20070701
  4. NEXIUM IV [Suspect]
     Dosage: 20 MG/D IV
     Route: 042
     Dates: start: 20070701
  5. ATIVAN [Suspect]
     Indication: AGITATION
     Dates: start: 20070701
  6. CLONIDINE [Suspect]
     Dosage: TRD
  7. METHADONE HCL [Suspect]
     Indication: DRUG WITHDRAWAL SYNDROME
     Dosage: 4/D PO
     Route: 048
     Dates: start: 20070701
  8. DIAZEPAM [Suspect]
     Indication: AGITATION
     Dosage: 4/D IV
     Route: 042
     Dates: start: 20070701
  9. PEPCID [Suspect]
     Dosage: 20 MG 2/D IV
     Route: 042
     Dates: start: 20070701
  10. DEMEROL [Suspect]
     Indication: PAIN
     Dates: start: 20070701
  11. PAXIL [Suspect]
     Dosage: 15 MG 2/D PO
     Route: 048

REACTIONS (1)
  - PANCREATITIS [None]
